FAERS Safety Report 4435977-1 (Version None)
Quarter: 2004Q3

REPORT INFORMATION
  Report Type: 
  Country: None (occurrence: None)
  Receive Date: 20040826
  Receipt Date: 20040816
  Transmission Date: 20050211
  Serious: Yes (Hospitalization)
  Sender: FDA-Public Use
  Company Number: USA-2003-0009270

PATIENT
  Age: 40 Year
  Sex: Female

DRUGS (4)
  1. OXYCONTIN [Suspect]
  2. MORPHINE SULFATE [Suspect]
  3. HYDROCODONE (HYDROCODONE) [Suspect]
  4. ALCOHOL (ETHANOL) [Suspect]

REACTIONS (4)
  - ALCOHOL USE [None]
  - DRUG SCREEN POSITIVE [None]
  - IMPAIRED DRIVING ABILITY [None]
  - ROAD TRAFFIC ACCIDENT [None]
